FAERS Safety Report 7924218-6 (Version None)
Quarter: 2011Q4

REPORT INFORMATION
  Report Type: 
  Country: None (occurrence: None)
  Receive Date: 20111117
  Receipt Date: 20110215
  Transmission Date: 20120403
  Serious: Yes (Hospitalization)
  Sender: FDA-Public Use
  Company Number: US-AMGEN-USASP2011008880

PATIENT
  Age: 57 Year
  Sex: Female

DRUGS (2)
  1. METHOTREXATE [Concomitant]
     Dates: start: 20070201
  2. ENBREL [Suspect]
     Indication: PSORIATIC ARTHROPATHY
     Dosage: 50 MG, QWK
     Dates: start: 20070301, end: 20110114

REACTIONS (5)
  - DRY SKIN [None]
  - SKIN EXFOLIATION [None]
  - LOCALISED INFECTION [None]
  - DRUG EFFECT DECREASED [None]
  - PSORIATIC ARTHROPATHY [None]
